FAERS Safety Report 6399697-9 (Version None)
Quarter: 2009Q4

REPORT INFORMATION
  Report Type: 
  Country: None (occurrence: None)
  Receive Date: 20091014
  Receipt Date: 20091005
  Transmission Date: 20100525
  Serious: Yes (Other)
  Sender: FDA-Public Use
  Company Number: FR-JNJFOC-20091001368

PATIENT
  Age: 57 Year
  Sex: Female

DRUGS (6)
  1. TOPIRAMATE [Suspect]
     Route: 048
  2. TOPIRAMATE [Suspect]
     Route: 048
  3. TOPIRAMATE [Suspect]
     Indication: EPILEPSY
     Route: 048
  4. VALPROIC ACID [Suspect]
     Route: 048
  5. VALPROIC ACID [Suspect]
     Route: 048
  6. VALPROIC ACID [Suspect]
     Indication: EPILEPSY
     Route: 048

REACTIONS (4)
  - BRAIN NEOPLASM [None]
  - CONVULSION [None]
  - DEPRESSION [None]
  - PSYCHOTIC DISORDER [None]
